FAERS Safety Report 10677872 (Version 2)
Quarter: 2015Q1

REPORT INFORMATION
  Report Type: Spontaneous
  Country: US (occurrence: US)
  Receive Date: 20141229
  Receipt Date: 20150109
  Transmission Date: 20150720
  Serious: Yes (Hospitalization)
  Sender: FDA-Public Use
  Company Number: US-BEH-2014047442

PATIENT
  Age: 20 Year
  Sex: Male
  Weight: 52 kg

DRUGS (31)
  1. AVELOX [Concomitant]
     Active Substance: MOXIFLOXACIN HYDROCHLORIDE
  2. ACETAMINOPHEN. [Concomitant]
     Active Substance: ACETAMINOPHEN
  3. COREG [Concomitant]
     Active Substance: CARVEDILOL
  4. MAGNESIUM [Concomitant]
     Active Substance: MAGNESIUM
  5. XOPENEX HFA [Concomitant]
     Active Substance: LEVALBUTEROL TARTRATE
  6. NEXIUM DR [Concomitant]
  7. AMIKACIN [Concomitant]
     Active Substance: AMIKACIN
  8. HIZENTRA [Suspect]
     Active Substance: HUMAN IMMUNOGLOBULIN G
     Indication: IMMUNODEFICIENCY
     Route: 058
     Dates: start: 20140905
  9. LIDOCAINE. [Concomitant]
     Active Substance: LIDOCAINE
  10. PREDNISONE. [Concomitant]
     Active Substance: PREDNISONE
  11. LISINOPRIL. [Concomitant]
     Active Substance: LISINOPRIL
  12. HIZENTRA [Suspect]
     Active Substance: HUMAN IMMUNOGLOBULIN G
     Indication: IMMUNOSUPPRESSION
     Route: 058
     Dates: start: 20140905
  13. COLCRYS [Concomitant]
     Active Substance: COLCHICINE
  14. L-CARNITINE [Concomitant]
     Active Substance: CARNITINE
  15. ALDACTONE [Concomitant]
     Active Substance: SPIRONOLACTONE
  16. LISINOPRIL. [Concomitant]
     Active Substance: LISINOPRIL
  17. COENZYME Q10 [Concomitant]
     Active Substance: UBIDECARENONE
  18. CARNITINE [Concomitant]
     Active Substance: CARNITINE
  19. EPIPEN [Concomitant]
     Active Substance: EPINEPHRINE
  20. SINGULAIR [Concomitant]
     Active Substance: MONTELUKAST SODIUM
  21. LASIX [Concomitant]
     Active Substance: FUROSEMIDE
  22. DIGOXIN. [Concomitant]
     Active Substance: DIGOXIN
  23. ASPIRIN EC [Concomitant]
     Active Substance: ASPIRIN
  24. MYAMBUTOL [Concomitant]
     Active Substance: ETHAMBUTOL HYDROCHLORIDE
  25. HIZENTRA [Suspect]
     Active Substance: HUMAN IMMUNOGLOBULIN G
     Indication: IMMUNOSUPPRESSION
     Route: 058
     Dates: start: 20140905
  26. PENTAMIDINE [Concomitant]
     Active Substance: PENTAMIDINE
  27. DIPHENHYDRAMINE [Concomitant]
     Active Substance: DIPHENHYDRAMINE
  28. DAILY MULTIVITAMIN [Concomitant]
     Active Substance: VITAMINS
  29. COENZYME Q10 [Concomitant]
     Active Substance: UBIDECARENONE
  30. ALLOPURINOL. [Concomitant]
     Active Substance: ALLOPURINOL
  31. FISH OIL [Concomitant]
     Active Substance: FISH OIL

REACTIONS (4)
  - Clostridium difficile colitis [Recovering/Resolving]
  - Gastrointestinal haemorrhage [Recovering/Resolving]
  - Cytomegalovirus gastritis [Recovering/Resolving]
  - Gastric haemorrhage [Recovering/Resolving]

NARRATIVE: CASE EVENT DATE: 20141215
